FAERS Safety Report 18176032 (Version 2)
Quarter: 2020Q4

REPORT INFORMATION
  Report Type: Spontaneous
  Country: US (occurrence: US)
  Receive Date: 20200820
  Receipt Date: 20201124
  Transmission Date: 20210113
  Serious: No
  Sender: FDA-Public Use
  Company Number: US-LUPIN PHARMACEUTICALS INC.-2020-04444

PATIENT
  Age: 64 Year
  Sex: Female
  Weight: 117.91 kg

DRUGS (2)
  1. BUDESONIDE INHALATION SUSPENSION, 0.5 MG/2 ML [Suspect]
     Active Substance: BUDESONIDE
     Indication: NASAL IRRIGATION
     Dosage: UNK UNK, QD
     Route: 045
     Dates: start: 20200618, end: 20200712
  2. SYMBICORT [Concomitant]
     Active Substance: BUDESONIDE\FORMOTEROL FUMARATE DIHYDRATE
     Indication: ASTHMA
     Dosage: UNK

REACTIONS (6)
  - Drug ineffective [Unknown]
  - Dyspnoea [Not Recovered/Not Resolved]
  - Product packaging quantity issue [Unknown]
  - Nasal congestion [Not Recovered/Not Resolved]
  - Product dose omission issue [Unknown]
  - Off label use [Unknown]

NARRATIVE: CASE EVENT DATE: 20200618
